FAERS Safety Report 4512312-1 (Version None)
Quarter: 2004Q4

REPORT INFORMATION
  Report Type: 
  Country: None (occurrence: None)
  Receive Date: 20041123
  Receipt Date: 20041102
  Transmission Date: 20050328
  Serious: Yes (Hospitalization)
  Sender: FDA-Public Use
  Company Number: 2004EU001999

PATIENT
  Sex: Male

DRUGS (3)
  1. PROTOPIC [Suspect]
     Indication: DERMATITIS ATOPIC
     Dosage: SEE IMAGE
     Route: 061
     Dates: start: 20040714, end: 20040724
  2. PROTOPIC [Suspect]
     Indication: DERMATITIS ATOPIC
     Dosage: SEE IMAGE
     Route: 061
     Dates: start: 20040725, end: 20040728
  3. PROTOPIC [Suspect]
     Indication: DERMATITIS ATOPIC
     Dosage: SEE IMAGE
     Route: 061
     Dates: start: 20040729

REACTIONS (12)
  - ALOPECIA [None]
  - APLASTIC ANAEMIA [None]
  - BLOOD IMMUNOGLOBULIN G [None]
  - BLOOD IMMUNOGLOBULIN G ABNORMAL [None]
  - BONE MARROW DEPRESSION [None]
  - CANDIDIASIS [None]
  - DIARRHOEA [None]
  - HUMAN HERPESVIRUS 6 INFECTION [None]
  - PYREXIA [None]
  - RED BLOOD CELL SEDIMENTATION RATE INCREASED [None]
  - RHINITIS [None]
  - VIRAL INFECTION [None]
